FAERS Safety Report 7275768-X (Version None)
Quarter: 2011Q1

REPORT INFORMATION
  Report Type: 
  Country: None (occurrence: None)
  Receive Date: 20110204
  Receipt Date: 20110126
  Transmission Date: 20110831
  Serious: Yes (Hospitalization, Other)
  Sender: FDA-Public Use
  Company Number: US-MERCK-0811USA02810

PATIENT
  Age: 67 Year
  Sex: Female
  Weight: 55 kg

DRUGS (6)
  1. MOBIC [Concomitant]
     Indication: OSTEOARTHRITIS
     Route: 065
  2. CALCIUM (UNSPECIFIED) [Concomitant]
     Route: 065
  3. TYLENOL-500 [Concomitant]
     Route: 065
  4. FOSAMAX [Suspect]
     Indication: OSTEOPOROSIS
     Route: 048
     Dates: start: 19951201, end: 20071201
  5. FOSAMAX PLUS D [Suspect]
     Route: 048
     Dates: start: 19950101, end: 20080101
  6. FOSAMAX [Suspect]
     Route: 048
     Dates: start: 20040501, end: 20080101

REACTIONS (25)
  - OSTEONECROSIS OF JAW [None]
  - ANXIETY DISORDER [None]
  - DEPRESSION [None]
  - TOOTH ABSCESS [None]
  - TOOTHACHE [None]
  - ABSCESS [None]
  - IMPAIRED HEALING [None]
  - TOOTH FRACTURE [None]
  - HYPERTENSION [None]
  - OSTEOMYELITIS [None]
  - ORAL TORUS [None]
  - THYROID NEOPLASM [None]
  - MUSCULOSKELETAL PAIN [None]
  - NEUROPATHY PERIPHERAL [None]
  - ARTHRITIS INFECTIVE [None]
  - GINGIVAL RECESSION [None]
  - ORAL INFECTION [None]
  - SCOLIOSIS [None]
  - PERIODONTAL DISEASE [None]
  - SENSITIVITY OF TEETH [None]
  - PROCTALGIA [None]
  - HYPERCHOLESTEROLAEMIA [None]
  - DRUG WITHDRAWAL SYNDROME [None]
  - HERPES ZOSTER [None]
  - TOOTH DEPOSIT [None]
